FAERS Safety Report 4449554-X (Version None)
Quarter: 2004Q3

REPORT INFORMATION
  Report Type: 
  Country: None (occurrence: None)
  Receive Date: 20040913
  Receipt Date: 20040826
  Transmission Date: 20050211
  Serious: Yes (Death, Hospitalization)
  Sender: FDA-Public Use
  Company Number: NO-2004-030938

PATIENT
  Age: 94 Year
  Sex: Male

DRUGS (6)
  1. SOTALOL HCL [Suspect]
     Indication: ATRIAL FIBRILLATION
     Dosage: 160 MG/E, ORAL
     Route: 048
     Dates: start: 20031223, end: 20031224
  2. LANOXIN [Suspect]
     Indication: ATRIAL FIBRILLATION
     Dosage: 0.05 MG/D, ORAL
     Route: 048
  3. ISOPTIN SR [Suspect]
     Indication: ATRIAL FIBRILLATION
     Dosage: ORAL
     Route: 048
  4. CARDURAN (DOXAZOSIN MESILATE) [Concomitant]
  5. MUCOMYST [Concomitant]
  6. COZAAR [Concomitant]

REACTIONS (4)
  - BLOOD CREATININE INCREASED [None]
  - BRADYCARDIA [None]
  - CARDIOACTIVE DRUG LEVEL INCREASED [None]
  - DRUG INTERACTION [None]
